FAERS Safety Report 16413777 (Version 3)
Quarter: 2024Q4

REPORT INFORMATION
  Report Type: Spontaneous
  Country: JP (occurrence: JP)
  Receive Date: 20190611
  Receipt Date: 20241020
  Transmission Date: 20250114
  Serious: Yes (Other)
  Sender: SANOFI AVENTIS
  Company Number: JP-SA-2019SA155124

PATIENT
  Age: 48 Year
  Sex: Male

DRUGS (15)
  1. DUPIXENT [Suspect]
     Active Substance: DUPILUMAB
     Indication: Dermatitis atopic
     Dosage: QOW
     Route: 058
     Dates: start: 20180531, end: 20180712
  2. DUPIXENT [Suspect]
     Active Substance: DUPILUMAB
     Dosage: QOW
     Route: 058
     Dates: start: 20180725, end: 20180919
  3. DUPIXENT [Suspect]
     Active Substance: DUPILUMAB
     Dosage: 1X
     Route: 058
     Dates: start: 20181004, end: 20181004
  4. DUPIXENT [Suspect]
     Active Substance: DUPILUMAB
     Dosage: UNK UNK, 1X
     Route: 058
     Dates: start: 20181218, end: 20181218
  5. DUPIXENT [Suspect]
     Active Substance: DUPILUMAB
     Dosage: UNK UNK, 1X
     Route: 058
     Dates: start: 20190109, end: 20190109
  6. DUPIXENT [Suspect]
     Active Substance: DUPILUMAB
     Dosage: UNK UNK, 1X
     Route: 058
     Dates: start: 20190312, end: 20190312
  7. DUPIXENT [Suspect]
     Active Substance: DUPILUMAB
     Dosage: UNK UNK, 1X
     Route: 058
     Dates: start: 20190422, end: 20190422
  8. DUPIXENT [Suspect]
     Active Substance: DUPILUMAB
     Dosage: UNK
     Route: 058
     Dates: start: 2019, end: 20190523
  9. BEPOTASTINE BESYLATE [Concomitant]
     Active Substance: BEPOTASTINE BESYLATE
     Indication: Product used for unknown indication
     Dosage: 10 MG, BID
     Route: 048
  10. APREMILAST [Concomitant]
     Active Substance: APREMILAST
     Indication: Psoriatic arthropathy
     Dosage: UNK
     Route: 065
     Dates: start: 20190523, end: 20200212
  11. APREMILAST [Concomitant]
     Active Substance: APREMILAST
     Indication: Dermatitis atopic
  12. METHOTREXATE [Concomitant]
     Active Substance: METHOTREXATE
     Indication: Psoriatic arthropathy
     Dosage: 6 MG, QW
     Route: 065
     Dates: start: 20190709, end: 20200107
  13. METHOTREXATE [Concomitant]
     Active Substance: METHOTREXATE
     Indication: Dermatitis atopic
  14. BRODALUMAB [Concomitant]
     Active Substance: BRODALUMAB
     Indication: Psoriatic arthropathy
     Dosage: UNK
     Route: 065
     Dates: start: 20200212
  15. BRODALUMAB [Concomitant]
     Active Substance: BRODALUMAB
     Indication: Dermatitis atopic

REACTIONS (10)
  - Psoriatic arthropathy [Recovering/Resolving]
  - Erythema [Recovering/Resolving]
  - Pyrexia [Recovering/Resolving]
  - Arthralgia [Recovering/Resolving]
  - Pain in extremity [Recovering/Resolving]
  - Back pain [Recovering/Resolving]
  - Psoriasis [Recovering/Resolving]
  - Blepharitis [Recovering/Resolving]
  - Eyelids pruritus [Recovering/Resolving]
  - Inappropriate schedule of product administration [Unknown]

NARRATIVE: CASE EVENT DATE: 20180808
